FAERS Safety Report 7153016-9 (Version None)
Quarter: 2010Q4

REPORT INFORMATION
  Report Type: 
  Country: None (occurrence: None)
  Receive Date: 20101130
  Receipt Date: 20101119
  Transmission Date: 20110411
  Serious: Yes (Death)
  Sender: FDA-Public Use
  Company Number: TPA2010A03943

PATIENT
  Age: 73 Year
  Sex: Female

DRUGS (1)
  1. ULORIC [Suspect]
     Dosage: 80 MG, 1 IN 1 D, PER ORAL
     Route: 048
     Dates: start: 20100219

REACTIONS (1)
  - RENAL FAILURE [None]
